FAERS Safety Report 7288380-3 (Version None)
Quarter: 2011Q1

REPORT INFORMATION
  Report Type: 
  Country: None (occurrence: None)
  Receive Date: 20110211
  Receipt Date: 20110209
  Transmission Date: 20110831
  Serious: Yes (Hospitalization)
  Sender: FDA-Public Use
  Company Number: A0764364A

PATIENT
  Age: 51 Year
  Sex: Male
  Weight: 90.9 kg

DRUGS (4)
  1. METFORMIN HCL [Concomitant]
     Dates: start: 19940601
  2. AVANDIA [Suspect]
     Indication: TYPE 2 DIABETES MELLITUS
     Dosage: 4MG PER DAY
     Route: 048
     Dates: start: 20000401, end: 20060101
  3. GLUCOTROL XL [Concomitant]
     Dates: start: 19950101, end: 20010101
  4. ASPIRIN [Concomitant]

REACTIONS (3)
  - MYOCARDIAL INFARCTION [None]
  - CORONARY ARTERY DISEASE [None]
  - ANGINA UNSTABLE [None]
